FAERS Safety Report 7189534-7 (Version None)
Quarter: 2010Q4

REPORT INFORMATION
  Report Type: 
  Country: None (occurrence: None)
  Receive Date: 20101223
  Receipt Date: 20101213
  Transmission Date: 20110411
  Serious: Yes (Hospitalization)
  Sender: FDA-Public Use
  Company Number: US-BIOGENIDEC-2010BI042534

PATIENT
  Age: 45 Year
  Sex: Female

DRUGS (1)
  1. AVONEX [Suspect]
     Indication: MULTIPLE SCLEROSIS
     Route: 030
     Dates: start: 20040814

REACTIONS (5)
  - AMNESIA [None]
  - CONVULSION [None]
  - FALL [None]
  - PAIN IN EXTREMITY [None]
  - RHEUMATOID ARTHRITIS [None]
